FAERS Safety Report 21734475 (Version 1)
Quarter: 2022Q4

REPORT INFORMATION
  Report Type: Spontaneous
  Country: US (occurrence: None)
  Receive Date: 20221215
  Receipt Date: 20221215
  Transmission Date: 20230113
  Serious: Yes (Death)
  Sender: FDA-Public Use
  Company Number: None

PATIENT
  Age: 86 Year
  Sex: Female
  Weight: 59.92 kg

DRUGS (16)
  1. XGEVA [Suspect]
     Active Substance: DENOSUMAB
     Indication: Plasma cell myeloma
     Dosage: 120MG ONCE MONT SUBCUTANESOUSLY?
     Route: 058
  2. ACYCLOVIR [Concomitant]
     Active Substance: ACYCLOVIR
  3. AMLODIPINE [Concomitant]
  4. ASPIRIN [Concomitant]
     Active Substance: ASPIRIN
  5. CALCIUM [Concomitant]
     Active Substance: CALCIUM
  6. CARAFATE [Concomitant]
     Active Substance: SUCRALFATE
  7. COENZYME Q-10 [Concomitant]
  8. DEXAMETHASONE [Concomitant]
     Active Substance: DEXAMETHASONE
  9. DONZEPEZIL [Concomitant]
  10. DRENAMIN [Concomitant]
  11. FOLIC ACID [Concomitant]
     Active Substance: FOLIC ACID
  12. GINKGO [Concomitant]
     Active Substance: GINKGO
  13. ASIAN GINSENG [Concomitant]
     Active Substance: ASIAN GINSENG
  14. SIMVASTATIN [Concomitant]
  15. VELCADE [Concomitant]
     Active Substance: BORTEZOMIB
  16. VITAMIN B12 [Concomitant]
     Active Substance: CYANOCOBALAMIN

REACTIONS (1)
  - Death [None]
